FAERS Safety Report 5948502-0 (Version None)
Quarter: 2008Q4

REPORT INFORMATION
  Report Type: 
  Country: None (occurrence: None)
  Receive Date: 20081111
  Receipt Date: 20081106
  Transmission Date: 20090506
  Serious: Yes (Other)
  Sender: FDA-Public Use
  Company Number: B0545085A

PATIENT
  Age: 2 Year
  Sex: Male

DRUGS (9)
  1. ARRANON [Suspect]
     Dosage: 350MG PER DAY
     Route: 042
     Dates: start: 20081020, end: 20081024
  2. ZYLORIC [Concomitant]
     Indication: DRUG USE FOR UNKNOWN INDICATION
     Route: 048
     Dates: start: 20081020, end: 20081020
  3. COTRIM [Concomitant]
     Indication: DRUG USE FOR UNKNOWN INDICATION
     Route: 048
     Dates: start: 20081020, end: 20081020
  4. COTRIM [Concomitant]
     Route: 048
     Dates: start: 20081022, end: 20081022
  5. COTRIM [Concomitant]
     Route: 048
     Dates: start: 20081024, end: 20081024
  6. HYDROCORTISONE 10MG TAB [Concomitant]
     Indication: DRUG USE FOR UNKNOWN INDICATION
     Route: 042
     Dates: start: 20081020, end: 20081020
  7. CYLOCIDE [Concomitant]
     Indication: DRUG USE FOR UNKNOWN INDICATION
     Dates: start: 20081020, end: 20081020
  8. NEO-MINOPHAGEN-C [Concomitant]
     Indication: DRUG USE FOR UNKNOWN INDICATION
     Route: 042
     Dates: start: 20081021
  9. FUNGUARD [Concomitant]
     Indication: DRUG USE FOR UNKNOWN INDICATION
     Route: 042
     Dates: start: 20081015

REACTIONS (1)
  - RHABDOMYOLYSIS [None]
